FAERS Safety Report 4706160-7 (Version None)
Quarter: 2005Q2

REPORT INFORMATION
  Report Type: 
  Country: None (occurrence: None)
  Receive Date: 20050629
  Receipt Date: 20050307
  Transmission Date: 20051028
  Serious: Yes (Death)
  Sender: FDA-Public Use
  Company Number: 04P-163-0276990-00

PATIENT
  Age: 56 Year
  Sex: Female

DRUGS (24)
  1. HUMIRA [Suspect]
     Indication: RHEUMATOID ARTHRITIS
     Dosage: 40 MG, SUBCUTANEOUS
     Route: 058
  2. HYDROCHLOROTHIAZIDE [Concomitant]
  3. METHOTREXATE SODIUM [Concomitant]
  4. ESOMEPRAZOLE [Concomitant]
  5. PREDNISONE TAB [Concomitant]
  6. FOLIC ACID [Concomitant]
  7. GABAPENTIN [Concomitant]
  8. SIMVASTATIN [Concomitant]
  9. LEVOTHYROXINE SODIUM [Concomitant]
  10. ASPIRIN [Concomitant]
  11. METHADONE [Concomitant]
  12. ISOSORBIDE [Concomitant]
  13. LISINOPRIL [Concomitant]
  14. CLONIDINE [Concomitant]
  15. LANSOPRAZOLE [Concomitant]
  16. NOVOLIN 20/80 [Concomitant]
  17. PIOGLITAZONE HCL [Concomitant]
  18. FUROSEMIDE [Concomitant]
  19. SALBUTAMOL [Concomitant]
  20. GLYCERYL TRINITRATE [Concomitant]
  21. POTASSIUM CHLORIDE [Concomitant]
  22. METAXALONE [Concomitant]
  23. HYDROXYCHLOROQUINE PHOSPHATE [Concomitant]
  24. TRAZODONE [Concomitant]

REACTIONS (1)
  - DEATH [None]
